FAERS Safety Report 25841683 (Version 1)
Quarter: 2025Q3

REPORT INFORMATION
  Report Type: Spontaneous
  Country: US (occurrence: US)
  Receive Date: 20250924
  Receipt Date: 20250924
  Transmission Date: 20251021
  Serious: No
  Sender: ROCHE
  Company Number: US-ROCHE-10000392429

PATIENT
  Age: 29 Year
  Sex: Male
  Weight: 65.32 kg

DRUGS (2)
  1. HEMLIBRA [Suspect]
     Active Substance: EMICIZUMAB-KXWH
     Indication: Factor VIII deficiency
     Dosage: STRENGTH: 60MG/0.4ML.?1ST INJECTION: USE 1VIAL OF 150MG(1ML).?2ND INJECTION : USE 2 VIALS OF 60MG(1.
     Route: 058
     Dates: start: 202309
  2. HEMLIBRA [Suspect]
     Active Substance: EMICIZUMAB-KXWH
     Dosage: STRENGTH: 150MG/ML
     Route: 058

REACTIONS (2)
  - Haemorrhage [Recovered/Resolved]
  - Weight increased [Unknown]
